FAERS Safety Report 18539306 (Version 1)
Quarter: 2020Q4

REPORT INFORMATION
  Report Type: Spontaneous
  Country: BG (occurrence: BG)
  Receive Date: 20201124
  Receipt Date: 20201124
  Transmission Date: 20210114
  Serious: Yes (Other)
  Sender: FDA-Public Use
  Company Number: NVSC2020BG311960

PATIENT
  Age: 67 Year
  Sex: Male

DRUGS (2)
  1. FEBUXOSTAT. [Concomitant]
     Active Substance: FEBUXOSTAT
     Indication: HYPERURICAEMIA
     Dosage: 60 MG, QD
     Route: 065
  2. HYDROCHLOROTHIAZIDE,VALSARTAN [Suspect]
     Active Substance: HYDROCHLOROTHIAZIDE\VALSARTAN
     Indication: HYPERTENSION
     Dosage: SCHEME (1-0-0) 160 / 12.5 MG (WITH TWO DIFFERENT COMMERCIAL PREPARATIONS)
     Route: 065
     Dates: start: 2011, end: 202003

REACTIONS (2)
  - Choroid melanoma [Recovered/Resolved]
  - Colorectal adenocarcinoma [Recovered/Resolved]

NARRATIVE: CASE EVENT DATE: 201912
